FAERS Safety Report 8913533 (Version 1)
Quarter: 2012Q4

REPORT INFORMATION
  Report Type: 
  Country: US (occurrence: US)
  Receive Date: 20121116
  Receipt Date: 20121116
  Transmission Date: 20130627
  Serious: No
  Sender: FDA-Public Use
  Company Number: US-BIOGENIDEC-2012BI052113

PATIENT
  Sex: Female

DRUGS (1)
  1. TYSABRI [Suspect]
     Indication: MULTIPLE SCLEROSIS
     Route: 042
     Dates: start: 20090513

REACTIONS (9)
  - Inappropriate schedule of drug administration [Recovered/Resolved]
  - Memory impairment [Recovered/Resolved]
  - Loss of control of legs [Recovered/Resolved]
  - Vibratory sense increased [Recovered/Resolved]
  - Dysuria [Recovered/Resolved]
  - Hypoaesthesia [Recovered/Resolved]
  - Muscle spasms [Recovered/Resolved]
  - Paraesthesia [Recovered/Resolved]
  - Cognitive disorder [Recovered/Resolved]
